FAERS Safety Report 7684665-7 (Version None)
Quarter: 2011Q3

REPORT INFORMATION
  Report Type: 
  Country: None (occurrence: None)
  Receive Date: 20110805
  Receipt Date: 20110706
  Transmission Date: 20111222
  Serious: Yes (Hospitalization)
  Sender: FDA-Public Use
  Company Number: 2011PROUSA00436

PATIENT
  Age: 80 Year
  Sex: Male

DRUGS (4)
  1. PROVENGE [Suspect]
  2. CASODEX [Concomitant]
  3. PROVENGE [Suspect]
     Indication: PROSTATE CANCER METASTATIC
     Dosage: 250 ML, SINGLE, INTRAVENOUS
     Route: 042
     Dates: start: 20110624, end: 20110624
  4. PROVENGE [Suspect]
     Indication: PROSTATE CANCER METASTATIC
     Dosage: 250 ML, SINGLE, INTRAVENOUS
     Route: 042
     Dates: start: 20110610, end: 20110610

REACTIONS (11)
  - HYPOTENSION [None]
  - FATIGUE [None]
  - VOMITING [None]
  - CHILLS [None]
  - ASTHENIA [None]
  - MALAISE [None]
  - FEELING OF BODY TEMPERATURE CHANGE [None]
  - NAUSEA [None]
  - DECREASED APPETITE [None]
  - PYREXIA [None]
  - INFUSION RELATED REACTION [None]
